FAERS Safety Report 5507492-5 (Version None)
Quarter: 2007Q4

REPORT INFORMATION
  Report Type: 
  Country: None (occurrence: None)
  Receive Date: 20071102
  Receipt Date: 20071024
  Transmission Date: 20080405
  Serious: Yes (Disabling)
  Sender: FDA-Public Use
  Company Number: 2007AL004518

PATIENT
  Age: 72 Year
  Sex: Female

DRUGS (3)
  1. MIRTAZAPINE [Suspect]
     Indication: DEPRESSION
     Dosage: 30 MG; QD; PO
     Route: 048
     Dates: start: 20070907
  2. RISPERIDONE [Concomitant]
  3. LORAZEPAM [Concomitant]

REACTIONS (1)
  - CEREBROVASCULAR ACCIDENT [None]
